FAERS Safety Report 11133172 (Version 31)
Quarter: 2023Q2

REPORT INFORMATION
  Report Type: Report from Study
  Country: FR (occurrence: FR)
  Receive Date: 20150522
  Receipt Date: 20230523
  Transmission Date: 20230722
  Serious: Yes (Hospitalization, Other)
  Sender: FDA-Public Use
  Company Number: FR-AEGERION PHARMACEUTICAL INC.-AEGR001398

PATIENT

DRUGS (54)
  1. METRELEPTIN [Suspect]
     Active Substance: METRELEPTIN
     Indication: Lipodystrophy acquired
     Dosage: 0.4 ML, QD
     Route: 058
     Dates: start: 20140109
  2. METRELEPTIN [Suspect]
     Active Substance: METRELEPTIN
     Dosage: 0.8 ML, QD
     Route: 058
     Dates: start: 20140212
  3. METRELEPTIN [Suspect]
     Active Substance: METRELEPTIN
     Dosage: 1.2 ML, QD
     Route: 058
     Dates: start: 20140514
  4. METRELEPTIN [Suspect]
     Active Substance: METRELEPTIN
     Dosage: 1.4 ML, QD
     Route: 058
     Dates: start: 20141010
  5. METRELEPTIN [Suspect]
     Active Substance: METRELEPTIN
     Dosage: 2 ML, QD
     Route: 058
     Dates: start: 201412, end: 20150102
  6. METRELEPTIN [Suspect]
     Active Substance: METRELEPTIN
     Dosage: 0.07 MG/KG/D (4.1 MG)
     Route: 058
     Dates: start: 20170309
  7. METRELEPTIN [Suspect]
     Active Substance: METRELEPTIN
     Dosage: 0.18 MG/KG/D  (11.4 MG)
     Route: 058
     Dates: start: 20171110
  8. METRELEPTIN [Suspect]
     Active Substance: METRELEPTIN
     Dosage: 11.3 MG, QD
     Dates: end: 20190703
  9. METRELEPTIN [Suspect]
     Active Substance: METRELEPTIN
     Dosage: 11.3 MG, QD
     Dates: start: 20191028
  10. METRELEPTIN [Suspect]
     Active Substance: METRELEPTIN
     Dosage: 0.02 MILLIGRAM/KILOGRAM, QD
     Dates: start: 20140109
  11. METRELEPTIN [Suspect]
     Active Substance: METRELEPTIN
     Dosage: 0.12 MILLIGRAM/KILOGRAM
  12. METFORMIN HYDROCHLORIDE [Concomitant]
     Active Substance: METFORMIN HYDROCHLORIDE
     Indication: Diabetes mellitus
     Dosage: 700 MG, TID
     Dates: start: 201310
  13. ENALAPRIL [Concomitant]
     Active Substance: ENALAPRIL
     Indication: Hypertension
     Dosage: 50 MG, QD
     Dates: start: 201401
  14. INSULIN NOS [Concomitant]
     Active Substance: INSULIN NOS
     Indication: Diabetes mellitus
     Dosage: 80 UNITS, QD
     Dates: start: 201209
  15. LEVEMIR [Concomitant]
     Active Substance: INSULIN DETEMIR
     Indication: Diabetes mellitus
     Dosage: 60 IUID, BID
     Route: 058
     Dates: start: 201401
  16. LEVEMIR [Concomitant]
     Active Substance: INSULIN DETEMIR
     Dosage: MORNING 25 EVENING 35
  17. LEVEMIR [Concomitant]
     Active Substance: INSULIN DETEMIR
     Dosage: 80 IU ID, BID
  18. INSULIN HUMAN [Concomitant]
     Active Substance: INSULIN HUMAN
     Indication: Acquired generalised lipodystrophy
     Dosage: 7 UI/KG, QD
     Dates: start: 20150729
  19. INSULIN HUMAN [Concomitant]
     Active Substance: INSULIN HUMAN
     Indication: Diabetes mellitus
     Dosage: 3.5 U/KG,  QD
     Dates: start: 20131028
  20. INSULIN HUMAN [Concomitant]
     Active Substance: INSULIN HUMAN
     Dosage: 5 UI/KG, QD
     Dates: start: 20140529
  21. INSULIN HUMAN [Concomitant]
     Active Substance: INSULIN HUMAN
     Dosage: 2 U KG, QD
     Route: 058
     Dates: start: 20140913
  22. INSULIN HUMAN [Concomitant]
     Active Substance: INSULIN HUMAN
     Dosage: 7 UI/KG, QD
     Dates: start: 20141228
  23. INSULIN HUMAN [Concomitant]
     Active Substance: INSULIN HUMAN
     Dosage: 5.6 U/KG, QD
     Route: 058
  24. INSULIN HUMAN [Concomitant]
     Active Substance: INSULIN HUMAN
     Dosage: 2 U/KG, QD
     Dates: start: 20170713
  25. INSULIN HUMAN [Concomitant]
     Active Substance: INSULIN HUMAN
     Dosage: 2.5 IU, TID
  26. INSULIN HUMAN [Concomitant]
     Active Substance: INSULIN HUMAN
     Dosage: 30 INTERNATIONAL UNIT, TID
     Dates: start: 2012
  27. ASPIRIN DL-LYSINE [Concomitant]
     Active Substance: ASPIRIN DL-LYSINE
     Indication: Prophylaxis against transplant rejection
     Dosage: 250 MG, QD
  28. ASPIRIN DL-LYSINE [Concomitant]
     Active Substance: ASPIRIN DL-LYSINE
     Dosage: 100 MG, UNK
     Dates: start: 20170123
  29. PREDNISONE [Concomitant]
     Active Substance: PREDNISONE
     Indication: Prophylaxis against transplant rejection
     Dosage: 15 MG/QD
     Dates: start: 201701
  30. PREDNISONE [Concomitant]
     Active Substance: PREDNISONE
     Dosage: 12.5 MG, QD
  31. CELLCEPT [Concomitant]
     Active Substance: MYCOPHENOLATE MOFETIL
     Indication: Hepatic steatosis
     Dosage: 500 MG, BID
     Dates: start: 201702
  32. CELLCEPT [Concomitant]
     Active Substance: MYCOPHENOLATE MOFETIL
     Indication: Liver transplant
     Dosage: 500 MG,QD
  33. CELLCEPT [Concomitant]
     Active Substance: MYCOPHENOLATE MOFETIL
     Dosage: 1000  MG, BID
     Dates: start: 20170123
  34. CELLCEPT [Concomitant]
     Active Substance: MYCOPHENOLATE MOFETIL
     Dosage: 500 MG, BID
     Dates: start: 20191015
  35. TACROLIMUS [Concomitant]
     Active Substance: TACROLIMUS
     Indication: Hepatic steatosis
     Dosage: 4 MG/D
  36. TACROLIMUS [Concomitant]
     Active Substance: TACROLIMUS
     Indication: Liver transplant
     Dosage: 3 MG, QD
  37. TACROLIMUS [Concomitant]
     Active Substance: TACROLIMUS
     Dosage: 3 MG, QD
     Dates: start: 20170123
  38. TACROLIMUS [Concomitant]
     Active Substance: TACROLIMUS
     Dosage: 3 MG, QD
     Dates: end: 20191015
  39. VALGANCICLOVIR HYDROCHLORIDE [Concomitant]
     Active Substance: VALGANCICLOVIR HYDROCHLORIDE
     Indication: Prophylaxis against transplant rejection
     Dosage: 450 MG IN THE MORNING
     Dates: start: 20170220, end: 20171201
  40. BACTRIM [Concomitant]
     Active Substance: SULFAMETHOXAZOLE\TRIMETHOPRIM
     Indication: Prophylaxis against transplant rejection
     Dosage: 480 MG, QD
     Dates: end: 20171201
  41. LANSOPRAZOLE [Concomitant]
     Active Substance: LANSOPRAZOLE
     Indication: Gastrointestinal disorder prophylaxis
     Dosage: 30 MG, QD
     Dates: start: 201701, end: 20171201
  42. VALSARTAN [Concomitant]
     Active Substance: VALSARTAN
     Indication: Hypertension
     Dosage: 80 MG, QD
     Dates: start: 2016
  43. RITUXIMAB [Concomitant]
     Active Substance: RITUXIMAB
     Indication: Product used for unknown indication
     Dosage: 7 UI/KG, QD
     Dates: start: 2015
  44. RITUXIMAB [Concomitant]
     Active Substance: RITUXIMAB
     Dosage: 19 UI/KG, QD
  45. RITUXIMAB [Concomitant]
     Active Substance: RITUXIMAB
     Dosage: 6.8 UI/KG, QD
     Dates: start: 2015
  46. EVEROLIMUS [Concomitant]
     Active Substance: EVEROLIMUS
     Indication: Prophylaxis against transplant rejection
     Dosage: .75 MG, BID
     Dates: start: 201701
  47. VALSARTAN [Concomitant]
     Active Substance: VALSARTAN
     Indication: Product used for unknown indication
     Dosage: 40 MG, UNK
  48. HUMAN IMMUNOGLOBULIN G [Concomitant]
     Active Substance: HUMAN IMMUNOGLOBULIN G
     Indication: Immunoglobulins decreased
     Dosage: 0.5 G/KG
     Dates: start: 201711
  49. NEORAL [Concomitant]
     Active Substance: CYCLOSPORINE
     Indication: Liver transplant
     Dosage: 100 MG, BID
     Dates: start: 20191015
  50. CANDESARTAN [Concomitant]
     Active Substance: CANDESARTAN
     Indication: Hypertension
     Dosage: 4 MG, QD
  51. TRESIBA [Concomitant]
     Active Substance: INSULIN DEGLUDEC
     Indication: Diabetes mellitus
     Dosage: 70 INTERNATIONAL UNIT, QD
     Dates: start: 20190430
  52. TRESIBA [Concomitant]
     Active Substance: INSULIN DEGLUDEC
     Dosage: 80 INTERNATIONAL UNIT, QD
     Dates: start: 2012
  53. CERTICAN [Concomitant]
     Active Substance: EVEROLIMUS
     Indication: Liver transplant
     Dosage: 0.75 MG, BID
     Dates: start: 20191015
  54. TACROLIMUS [Concomitant]
     Active Substance: TACROLIMUS
     Indication: Liver transplant
     Dosage: 3 MILLIGRAM, QD
     Dates: start: 2017

REACTIONS (24)
  - Hepatic fibrosis [Unknown]
  - Hepatic steatosis [Not Recovered/Not Resolved]
  - Condition aggravated [Not Recovered/Not Resolved]
  - Hepatomegaly [Unknown]
  - Condition aggravated [Unknown]
  - Insulin resistance [Not Recovered/Not Resolved]
  - Condition aggravated [Not Recovered/Not Resolved]
  - Neutralising antibodies positive [Recovered/Resolved]
  - Diabetes mellitus [Not Recovered/Not Resolved]
  - Transaminases increased [Unknown]
  - Cryptosporidiosis infection [Recovered/Resolved]
  - Influenza [Unknown]
  - Epstein-Barr virus infection [Unknown]
  - Injection site inflammation [Recovered/Resolved]
  - Weight fluctuation [Unknown]
  - Hyperphagia [Unknown]
  - Condition aggravated [Unknown]
  - Hypertriglyceridaemia [Unknown]
  - Condition aggravated [Unknown]
  - Blood glucose increased [Unknown]
  - Condition aggravated [Unknown]
  - Drug ineffective [Unknown]
  - Prescribed overdose [Unknown]
  - Therapy cessation [Unknown]

NARRATIVE: CASE EVENT DATE: 20150604
